FAERS Safety Report 16766021 (Version 1)
Quarter: 2019Q3

REPORT INFORMATION
  Report Type: Spontaneous
  Country: US (occurrence: US)
  Receive Date: 20190713
  Receipt Date: 20190713
  Transmission Date: 20191005
  Serious: No
  Sender: FDA-Public Use
  Company Number: None

PATIENT
  Age: 60 Year
  Sex: Male

DRUGS (3)
  1. XTANDI [Concomitant]
     Active Substance: ENZALUTAMIDE
  2. LUPRON DEPOT [Suspect]
     Active Substance: LEUPROLIDE ACETATE
     Indication: PROSTATE CANCER
     Route: 030
     Dates: start: 20180701
  3. PROCARDIA XL [Concomitant]
     Active Substance: NIFEDIPINE

REACTIONS (3)
  - Breast enlargement [None]
  - Alopecia [None]
  - Fat tissue increased [None]

NARRATIVE: CASE EVENT DATE: 20190601
